APPROVED DRUG PRODUCT: TIAGABINE HYDROCHLORIDE
Active Ingredient: TIAGABINE HYDROCHLORIDE
Strength: 2MG
Dosage Form/Route: TABLET;ORAL
Application: A077555 | Product #001
Applicant: SUN PHARMACEUTICAL INDUSTRIES LTD
Approved: Nov 4, 2011 | RLD: No | RS: No | Type: DISCN